FAERS Safety Report 11394688 (Version 1)
Quarter: 2015Q3

REPORT INFORMATION
  Report Type: Spontaneous
  Country: US (occurrence: US)
  Receive Date: 20150819
  Receipt Date: 20150819
  Transmission Date: 20151125
  Serious: Yes (Other)
  Sender: FDA-Public Use
  Company Number: US-BEH-2015053116

PATIENT

DRUGS (1)
  1. HIZENTRA [Suspect]
     Active Substance: HUMAN IMMUNOGLOBULIN G
     Indication: PRODUCT USED FOR UNKNOWN INDICATION

REACTIONS (6)
  - Leg amputation [Unknown]
  - Bronchitis [Unknown]
  - Renal transplant [Unknown]
  - Pancreas transplant [Unknown]
  - Carpal tunnel decompression [Unknown]
  - Sinusitis [Unknown]
